APPROVED DRUG PRODUCT: CIPROFLOXACIN HYDROCHLORIDE
Active Ingredient: CIPROFLOXACIN HYDROCHLORIDE
Strength: EQ 500MG BASE
Dosage Form/Route: TABLET;ORAL
Application: A075747 | Product #002
Applicant: SUN PHARMACEUTICAL INDUSTRIES LTD
Approved: Jun 9, 2004 | RLD: No | RS: No | Type: DISCN